FAERS Safety Report 8607890 (Version 2)
Quarter: 2013Q1

REPORT INFORMATION
  Report Type: Spontaneous
  Country: DE (occurrence: CN)
  Receive Date: 20120611
  Receipt Date: 20130228
  Transmission Date: 20140127
  Serious: Yes (Death, Hospitalization)
  Sender: FDA-Public Use
  Company Number: DE-RANBAXY-2012US-57055

PATIENT
  Sex: 0

DRUGS (9)
  1. PANTOLOC [Suspect]
     Indication: PROPHYLAXIS
     Dosage: 40 MG, BID
     Route: 048
  2. PANTOLOC [Suspect]
     Indication: PROPHYLAXIS
     Dosage: 40 MG DAILY
     Route: 058
  3. PANTOLOC [Suspect]
     Dosage: UNK
  4. ASPIRIN [Concomitant]
     Indication: ACUTE CORONARY SYNDROME
     Dosage: UNK
     Route: 065
  5. CLOPIDOGREL [Concomitant]
     Indication: ACUTE CORONARY SYNDROME
     Dosage: UNK
     Route: 065
  6. TIROFIBAN HYDROCHLORIDE [Concomitant]
     Indication: ACUTE CORONARY SYNDROME
     Dosage: 0.4 MCG/KG.MIN FOR 30 MIN
     Route: 041
  7. TIROFIBAN HYDROCHLORIDE [Concomitant]
     Dosage: 0.1MCG/KG.MIN (FOR 2-3 DAYS)
     Route: 041
  8. ENOXAPARIN [Concomitant]
     Indication: ACUTE CORONARY SYNDROME
     Dosage: (FRO 2-3 DAYS)40 MG, BID
     Route: 058
  9. ENOXAPARIN [Concomitant]
     Dosage: 1MG/KG 12HOURS (FOR 3-4 DAYS)
     Route: 058

REACTIONS (1)
  - Myocardial infarction [Unknown]
